FAERS Safety Report 18035906 (Version 1)
Quarter: 2020Q3

REPORT INFORMATION
  Report Type: Spontaneous
  Country: GB (occurrence: GB)
  Receive Date: 20200717
  Receipt Date: 20200717
  Transmission Date: 20201103
  Serious: Yes (Hospitalization)
  Sender: FDA-Public Use
  Company Number: GB-ROCHE-2642785

PATIENT
  Age: 41 Year
  Sex: Female

DRUGS (7)
  1. TOCILIZUMAB. [Suspect]
     Active Substance: TOCILIZUMAB
     Indication: RHEUMATOID ARTHRITIS
     Route: 042
     Dates: start: 20200206, end: 20200515
  2. TRAMADOL. [Concomitant]
     Active Substance: TRAMADOL
  3. PROCHLORPERAZINE. [Concomitant]
     Active Substance: PROCHLORPERAZINE
  4. FOLIC ACID. [Concomitant]
     Active Substance: FOLIC ACID
  5. OXYCODONE [Concomitant]
     Active Substance: OXYCODONE
  6. METHOTREXATE. [Concomitant]
     Active Substance: METHOTREXATE
  7. PARACETAMOL [Concomitant]
     Active Substance: ACETAMINOPHEN

REACTIONS (5)
  - Subarachnoid haemorrhage [Recovering/Resolving]
  - Pulmonary artery aneurysm [Unknown]
  - Headache [Not Recovered/Not Resolved]
  - Photophobia [Unknown]
  - Dizziness [Not Recovered/Not Resolved]

NARRATIVE: CASE EVENT DATE: 20200529
